FAERS Safety Report 18762216 (Version 2)
Quarter: 2021Q3

REPORT INFORMATION
  Report Type: Report from Study
  Country: LU (occurrence: LU)
  Receive Date: 20210120
  Receipt Date: 20210811
  Transmission Date: 20211014
  Serious: Yes (Hospitalization, Other)
  Sender: FDA-Public Use
  Company Number: NVSC2021LU008534

PATIENT
  Age: 47 Year
  Sex: Female
  Weight: 105 kg

DRUGS (1)
  1. ALPELISIB [Suspect]
     Active Substance: ALPELISIB
     Indication: BREAST CANCER METASTATIC
     Dosage: 300 MG, QD
     Route: 048
     Dates: start: 20201228, end: 20210111

REACTIONS (1)
  - Skin toxicity [Recovering/Resolving]

NARRATIVE: CASE EVENT DATE: 20210108
